FAERS Safety Report 15278822 (Version 1)
Quarter: 2018Q3

REPORT INFORMATION
  Report Type: Spontaneous
  Country: ES (occurrence: ES)
  Receive Date: 20180815
  Receipt Date: 20180815
  Transmission Date: 20181010
  Serious: Yes (Hospitalization)
  Sender: FDA-Public Use
  Company Number: ES-TEVA-2018-ES-940731

PATIENT
  Age: 92 Year
  Sex: Male

DRUGS (1)
  1. TRAMADOL (2389A) [Suspect]
     Active Substance: TRAMADOL
     Route: 048
     Dates: start: 20180625, end: 20180625

REACTIONS (3)
  - Incorrect dosage administered [Recovered/Resolved]
  - Acute pulmonary oedema [Recovered/Resolved]
  - Urinary retention [Recovered/Resolved]

NARRATIVE: CASE EVENT DATE: 20180625
